FAERS Safety Report 6327783-8 (Version None)
Quarter: 2009Q3

REPORT INFORMATION
  Report Type: 
  Country: None (occurrence: None)
  Receive Date: 20090824
  Receipt Date: 20090812
  Transmission Date: 20100115
  Serious: No
  Sender: FDA-Public Use
  Company Number: 2009009567

PATIENT
  Sex: Male
  Weight: 163.2949 kg

DRUGS (1)
  1. FENTORA [Suspect]
     Indication: BACK PAIN
     Dosage: (800 MCG,150 TABLETS/MONTH), BU
     Route: 002

REACTIONS (2)
  - DRUG DISPENSING ERROR [None]
  - MEDICATION ERROR [None]
